FAERS Safety Report 19097549 (Version 2)
Quarter: 2021Q2

REPORT INFORMATION
  Report Type: Spontaneous
  Country: GB (occurrence: GB)
  Receive Date: 20210406
  Receipt Date: 20210420
  Transmission Date: 20210717
  Serious: Yes (Life-Threatening, Hospitalization)
  Sender: FDA-Public Use
  Company Number: GB-TEVA-2021-GB-1895841

PATIENT
  Age: 70 Year
  Sex: Male

DRUGS (1)
  1. WARFARIN [Suspect]
     Active Substance: WARFARIN
     Indication: MITRAL VALVE REPAIR
     Dosage: UNKNOWN
     Route: 065

REACTIONS (3)
  - Retroperitoneal haematoma [Unknown]
  - Retroperitoneal haemorrhage [Unknown]
  - International normalised ratio abnormal [Unknown]
